FAERS Safety Report 21997201 (Version 1)
Quarter: 2023Q1

REPORT INFORMATION
  Report Type: Spontaneous
  Country: US (occurrence: US)
  Receive Date: 20230216
  Receipt Date: 20230216
  Transmission Date: 20230418
  Serious: No
  Sender: FDA-Public Use
  Company Number: US-Accord-297373

PATIENT
  Age: 48 Year
  Sex: Female
  Weight: 78.93 kg

DRUGS (24)
  1. AMLODIPINE [Suspect]
     Active Substance: AMLODIPINE BESYLATE
     Indication: Product used for unknown indication
  2. METOPROLOL [Suspect]
     Active Substance: METOPROLOL
     Indication: Product used for unknown indication
  3. MIFEPRISTONE [Suspect]
     Active Substance: MIFEPRISTONE
     Indication: Cushing^s syndrome
     Dosage: TITRATION DOSE
     Route: 048
     Dates: start: 20220909, end: 20220913
  4. ALBUTEROL [Concomitant]
     Active Substance: ALBUTEROL
  5. CYTOMEL [Concomitant]
     Active Substance: LIOTHYRONINE SODIUM
  6. FLONASE [Concomitant]
     Active Substance: FLUTICASONE PROPIONATE
  7. GABAPENTIN [Concomitant]
     Active Substance: GABAPENTIN
  8. HYDROCHLOROTHIAZIDE [Concomitant]
     Active Substance: HYDROCHLOROTHIAZIDE
  9. IBUPROFEN [Concomitant]
     Active Substance: IBUPROFEN
  10. LORATADINE [Concomitant]
     Active Substance: LORATADINE
  11. LOVASTATIN [Concomitant]
     Active Substance: LOVASTATIN
  12. METFORMIN [Concomitant]
     Active Substance: METFORMIN HYDROCHLORIDE
  13. MIRTAZAPINE [Concomitant]
     Active Substance: MIRTAZAPINE
  14. PERCOCET [Concomitant]
     Active Substance: ACETAMINOPHEN\OXYCODONE HYDROCHLORIDE
  15. TIROSINT [Concomitant]
     Active Substance: LEVOTHYROXINE SODIUM
  16. TIZANIDINE [Concomitant]
     Active Substance: TIZANIDINE
  17. TOPIRAMATE [Concomitant]
     Active Substance: TOPIRAMATE
  18. FLUTICASONE FUROATE\UMECLIDINIUM BROMIDE\VILANTEROL TRIFENATATE [Concomitant]
     Active Substance: FLUTICASONE FUROATE\UMECLIDINIUM BROMIDE\VILANTEROL TRIFENATATE
  19. VITAMIN D NOS [Concomitant]
     Active Substance: VITAMIN D NOS
  20. VOLTAREN [Concomitant]
     Active Substance: DICLOFENAC SODIUM
  21. TIRZEPATIDE [Concomitant]
     Active Substance: TIRZEPATIDE
  22. MIFEPRISTONE [Suspect]
     Active Substance: MIFEPRISTONE
     Indication: Cushing^s syndrome
     Dosage: QD
     Route: 048
     Dates: start: 20220914, end: 20220927
  23. MIFEPRISTONE [Suspect]
     Active Substance: MIFEPRISTONE
     Indication: Cushing^s syndrome
     Dosage: QD
     Route: 048
     Dates: start: 20220928
  24. METOPROLOL [Suspect]
     Active Substance: METOPROLOL
     Indication: Product used for unknown indication

REACTIONS (16)
  - Ventricular extrasystoles [Not Recovered/Not Resolved]
  - Condition aggravated [Unknown]
  - Body temperature increased [Unknown]
  - Feeling hot [Unknown]
  - Blood glucose increased [Unknown]
  - Blood thyroid stimulating hormone decreased [Unknown]
  - Heart rate increased [Recovered/Resolved]
  - Tremor [Not Recovered/Not Resolved]
  - Nausea [Unknown]
  - Dizziness [Recovered/Resolved]
  - Blood pressure increased [Unknown]
  - Pain [Unknown]
  - Insomnia [Unknown]
  - Arthralgia [Not Recovered/Not Resolved]
  - Fatigue [Not Recovered/Not Resolved]
  - Hypotension [Recovering/Resolving]

NARRATIVE: CASE EVENT DATE: 20220101
